FAERS Safety Report 4563912-4 (Version None)
Quarter: 2005Q1

REPORT INFORMATION
  Report Type: 
  Country: None (occurrence: None)
  Receive Date: 20050128
  Receipt Date: 20050118
  Transmission Date: 20050727
  Serious: Yes (Hospitalization)
  Sender: FDA-Public Use
  Company Number: AT-JNJFOC-20050100921

PATIENT
  Sex: Female
  Weight: 59 kg

DRUGS (12)
  1. REMICADE [Suspect]
     Indication: RHEUMATOID ARTHRITIS
     Dosage: 3-5MG/KG. LAST INFSUION WAS ON 30-11-04
     Route: 042
  2. LEFLUNOMIDE [Concomitant]
     Indication: RHEUMATOID ARTHRITIS
     Route: 049
  3. LANSOPRAZOLE [Concomitant]
     Indication: GASTROINTESTINAL DISORDER THERAPY
     Route: 049
  4. APREDNISOLONE [Concomitant]
     Indication: RHEUMATOID ARTHRITIS
     Route: 049
  5. LISINOPRIL [Concomitant]
     Indication: HYPERTENSION
     Route: 049
  6. LORNOXICAM [Concomitant]
     Indication: PAIN
     Route: 049
  7. LORNOXICAM [Concomitant]
     Indication: RHEUMATOID ARTHRITIS
     Route: 049
  8. CORTISOL [Concomitant]
  9. ESCITALOPRAM [Concomitant]
  10. CALCIUM GLUCONATE [Concomitant]
  11. COLECALCIFEROL [Concomitant]
  12. TRAMADOLOL [Concomitant]

REACTIONS (1)
  - DISSEMINATED TUBERCULOSIS [None]
